FAERS Safety Report 8238380-1 (Version None)
Quarter: 2012Q1

REPORT INFORMATION
  Report Type: 
  Country: None (occurrence: None)
  Receive Date: 20120327
  Receipt Date: 20120320
  Transmission Date: 20120608
  Serious: Yes (Other)
  Sender: FDA-Public Use
  Company Number: US-PFIZER INC-2012073631

PATIENT
  Sex: Male

DRUGS (2)
  1. SUTENT [Suspect]
     Dosage: UNK
  2. VOTRIENT [Suspect]
     Indication: RENAL CANCER
     Dosage: 600 MG DAILY, (3 X 200 MG TABLETS DAILY)
     Route: 048

REACTIONS (7)
  - FATIGUE [None]
  - NIGHT SWEATS [None]
  - MUSCULAR WEAKNESS [None]
  - RENAL CANCER [None]
  - PAIN [None]
  - DISEASE PROGRESSION [None]
  - HYPOTHYROIDISM [None]
